FAERS Safety Report 5302044-4 (Version None)
Quarter: 2007Q2

REPORT INFORMATION
  Report Type: 
  Country: None (occurrence: None)
  Receive Date: 20070416
  Receipt Date: 20070416
  Transmission Date: 20071010
  Serious: Yes (Other)
  Sender: FDA-Public Use
  Company Number: None

PATIENT
  Age: 15 Year
  Sex: Female
  Weight: 72.1219 kg

DRUGS (1)
  1. GEODON [Suspect]
     Dosage: 80 MG BID PO
     Route: 048
     Dates: start: 20070130, end: 20070131

REACTIONS (3)
  - DYSKINESIA [None]
  - MUSCULOSKELETAL DISORDER [None]
  - SWOLLEN TONGUE [None]
